FAERS Safety Report 5420541-8 (Version None)
Quarter: 2007Q3

REPORT INFORMATION
  Report Type: 
  Country: None (occurrence: None)
  Receive Date: 20070821
  Receipt Date: 20061220
  Transmission Date: 20080115
  Serious: No
  Sender: FDA-Public Use
  Company Number: US-KINGPHARMUSA00001-K200601607

PATIENT

DRUGS (5)
  1. CYTOMEL [Suspect]
     Indication: HYPOTHYROIDISM
     Dosage: 50 MCG, QD
     Route: 048
     Dates: start: 19820101
  2. CYTOMEL [Suspect]
     Dosage: 25 MCG, QD
     Route: 048
     Dates: start: 20040101
  3. CYTOMEL [Suspect]
     Dosage: 50 MCG, QD
     Route: 048
  4. SYNTHROID [Concomitant]
     Indication: HYPOTHYROIDISM
     Dosage: 150 MCG, QD
     Route: 048
  5. SYNTHROID [Concomitant]
     Dosage: 175 MCG, QD
     Route: 048
     Dates: start: 20040101

REACTIONS (2)
  - BLOOD THYROID STIMULATING HORMONE DECREASED [None]
  - MUSCLE SPASMS [None]
